FAERS Safety Report 12761997 (Version 2)
Quarter: 2016Q4

REPORT INFORMATION
  Report Type: Spontaneous
  Country: DE (occurrence: DE)
  Receive Date: 20160920
  Receipt Date: 20161019
  Transmission Date: 20170207
  Serious: Yes (Hospitalization)
  Sender: FDA-Public Use
  Company Number: DE-VALIDUS PHARMACEUTICALS LLC-DE-2016VAL002628

PATIENT
  Age: 62 Year
  Sex: Female

DRUGS (6)
  1. L-THYROXINE [Concomitant]
     Active Substance: LEVOTHYROXINE
     Indication: PRODUCT USED FOR UNKNOWN INDICATION
     Dosage: UNK
     Route: 065
  2. URIVESC [Concomitant]
     Active Substance: TROSPIUM CHLORIDE
     Indication: PRODUCT USED FOR UNKNOWN INDICATION
     Dosage: UNK
     Route: 065
     Dates: start: 201605
  3. TRENTAL [Suspect]
     Active Substance: PENTOXIFYLLINE
     Indication: SUDDEN HEARING LOSS
     Dosage: 1 DF, QD (INFUSION, DRIP)
     Route: 042
     Dates: start: 20160704, end: 20160708
  4. TRENTAL [Suspect]
     Active Substance: PENTOXIFYLLINE
     Dosage: 1 DF, QD (INFUSION, DRIP)
     Route: 042
     Dates: start: 20160718, end: 20160722
  5. TRENTAL [Suspect]
     Active Substance: PENTOXIFYLLINE
     Indication: TINNITUS
     Dosage: 1 DF, QD (INFUSION, DRIP)
     Route: 042
     Dates: start: 20160711, end: 20160715
  6. CORTISONE [Concomitant]
     Active Substance: CORTISONE\HYDROCORTISONE
     Indication: PRODUCT USED FOR UNKNOWN INDICATION
     Dosage: UNK
     Route: 065
     Dates: start: 201607, end: 201607

REACTIONS (2)
  - Ocular hyperaemia [Recovered/Resolved]
  - Ocular hyperaemia [Recovered/Resolved]

NARRATIVE: CASE EVENT DATE: 20160715
